FAERS Safety Report 6239227-5 (Version None)
Quarter: 2009Q2

REPORT INFORMATION
  Report Type: 
  Country: None (occurrence: None)
  Receive Date: 20090622
  Receipt Date: 20090612
  Transmission Date: 20091009
  Serious: Yes (Other)
  Sender: FDA-Public Use
  Company Number: US-ABBOTT-09P-163-0579554-00

PATIENT
  Sex: Male

DRUGS (2)
  1. SIMCOR [Suspect]
     Indication: HIGH DENSITY LIPOPROTEIN INCREASED
     Dosage: 500/20MG DAILY
     Route: 048
     Dates: start: 20081101, end: 20090124
  2. LEVOTHYROXINE SODIUM [Concomitant]
     Indication: HYPOTHYROIDISM

REACTIONS (5)
  - EYE PENETRATION [None]
  - FACIAL BONES FRACTURE [None]
  - FLUSHING [None]
  - LOSS OF CONSCIOUSNESS [None]
  - SKIN LACERATION [None]
